FAERS Safety Report 6312631-2 (Version None)
Quarter: 2009Q3

REPORT INFORMATION
  Report Type: 
  Country: None (occurrence: None)
  Receive Date: 20090814
  Receipt Date: 20090804
  Transmission Date: 20100115
  Serious: Yes (Other)
  Sender: FDA-Public Use
  Company Number: CHPA2009US16335

PATIENT

DRUGS (2)
  1. ACETYLSALICYLIC ACID SRT [Suspect]
     Dosage: 325 MG, QD
  2. CLOPIDOGREL [Suspect]
     Dosage: 75 MG, QD

REACTIONS (1)
  - HAEMORRHAGE [None]
